FAERS Safety Report 14349086 (Version 1)
Quarter: 2018Q1

REPORT INFORMATION
  Report Type: Spontaneous
  Country: FR (occurrence: FR)
  Receive Date: 20180104
  Receipt Date: 20180104
  Transmission Date: 20180509
  Serious: Yes (Disabling)
  Sender: FDA-Public Use
  Company Number: FR-UCBSA-2017053218

PATIENT
  Age: 16 Year
  Sex: Female
  Weight: 53 kg

DRUGS (3)
  1. KEPPRA [Suspect]
     Active Substance: LEVETIRACETAM
     Dosage: 1000MG, 2 DF, ONCE DAILY (QD)
     Route: 048
     Dates: start: 201701
  2. KEPPRA [Suspect]
     Active Substance: LEVETIRACETAM
     Indication: PRODUCT USED FOR UNKNOWN INDICATION
     Dosage: 500 MG, 2 DF, ONCE DAILY (QD)
     Route: 048
     Dates: start: 201604, end: 201712
  3. KEPPRA [Suspect]
     Active Substance: LEVETIRACETAM
     Dosage: 750 MG, 2 DF, ONCE DAILY (QD)
     Route: 048
     Dates: start: 201612, end: 201701

REACTIONS (4)
  - Photophobia [Not Recovered/Not Resolved]
  - Diplopia [Not Recovered/Not Resolved]
  - Disturbance in attention [Not Recovered/Not Resolved]
  - Asthenia [Not Recovered/Not Resolved]

NARRATIVE: CASE EVENT DATE: 201701
